FAERS Safety Report 17719166 (Version 1)
Quarter: 2020Q2

REPORT INFORMATION
  Report Type: Report from Study
  Country: US (occurrence: US)
  Receive Date: 20200428
  Receipt Date: 20200428
  Transmission Date: 20200714
  Serious: Yes (Other)
  Sender: FDA-Public Use
  Company Number: NVSC2020US112445

PATIENT
  Sex: Female

DRUGS (1)
  1. ENTRESTO [Suspect]
     Active Substance: SACUBITRIL\VALSARTAN
     Indication: CARDIAC FAILURE CONGESTIVE
     Dosage: 50 MG (24/26 MG), BID
     Route: 048
     Dates: start: 201912

REACTIONS (7)
  - Glaucoma [Unknown]
  - Asthenia [Unknown]
  - Oxygen saturation decreased [Unknown]
  - Leukaemia [Unknown]
  - Cardiac failure [Unknown]
  - Breast cancer [Unknown]
  - Diabetes mellitus [Unknown]
